FAERS Safety Report 22720632 (Version 2)
Quarter: 2024Q3

REPORT INFORMATION
  Report Type: Spontaneous
  Country: US (occurrence: US)
  Receive Date: 20230719
  Receipt Date: 20240701
  Transmission Date: 20241017
  Serious: No
  Sender: NOVARTIS
  Company Number: US-GLAXOSMITHKLINE-USCH2023AMR031981

PATIENT
  Age: 49 Year
  Sex: Female

DRUGS (16)
  1. COSENTYX [Suspect]
     Active Substance: SECUKINUMAB
     Indication: Psoriasis
     Dosage: 150 MG
     Route: 065
     Dates: start: 20200622
  2. COSENTYX [Suspect]
     Active Substance: SECUKINUMAB
     Indication: Psoriatic arthropathy
     Dosage: 300 MG, QMO
     Route: 058
     Dates: start: 20230510
  3. DICLOFENAC [Suspect]
     Active Substance: DICLOFENAC
     Indication: Psoriatic arthropathy
     Dosage: UNK (OINTMENT)
     Route: 065
  4. DICLOFENAC [Suspect]
     Active Substance: DICLOFENAC
     Indication: Psoriasis
  5. ACETAMINOPHEN [Suspect]
     Active Substance: ACETAMINOPHEN
     Indication: Back pain
     Dosage: UNK
     Route: 065
  6. IBUPROFEN [Suspect]
     Active Substance: IBUPROFEN
     Indication: Back pain
     Dosage: UNK
     Route: 065
  7. SCOPOLAMINE HYDROBROMIDE [Suspect]
     Active Substance: SCOPOLAMINE HYDROBROMIDE
     Indication: Psoriasis
     Dosage: UNK
     Route: 065
  8. SCOPOLAMINE HYDROBROMIDE [Suspect]
     Active Substance: SCOPOLAMINE HYDROBROMIDE
     Indication: Psoriatic arthropathy
  9. ALCOHOL [Suspect]
     Active Substance: ALCOHOL
     Indication: Psoriasis
     Dosage: UNK
     Route: 065
  10. ALCOHOL [Suspect]
     Active Substance: ALCOHOL
     Indication: Psoriatic arthropathy
     Dosage: 150 MG, UNKNOWN
     Route: 065
     Dates: start: 20220622
  11. LIDOCAINE [Suspect]
     Active Substance: LIDOCAINE
     Indication: Psoriatic arthropathy
     Dosage: UNK (0.5CC 1%)
     Route: 065
  12. MELOXICAM [Suspect]
     Active Substance: MELOXICAM
     Indication: Psoriasis
     Dosage: UNK
     Route: 065
  13. MELOXICAM [Suspect]
     Active Substance: MELOXICAM
     Indication: Psoriatic arthropathy
     Dosage: UNK
     Route: 065
  14. IODINE [Suspect]
     Active Substance: IODINE
     Indication: Psoriatic arthropathy
     Dosage: UNK
     Route: 065
  15. IODINE [Suspect]
     Active Substance: IODINE
     Indication: Psoriasis
  16. SCOPOLAMINE [Suspect]
     Active Substance: SCOPOLAMINE
     Indication: Psoriasis
     Dosage: UNK
     Route: 065

REACTIONS (1)
  - Drug ineffective [Unknown]
